FAERS Safety Report 21992612 (Version 1)
Quarter: 2023Q1

REPORT INFORMATION
  Report Type: Spontaneous
  Country: US (occurrence: US)
  Receive Date: 20230215
  Receipt Date: 20230215
  Transmission Date: 20230418
  Serious: No
  Sender: FDA-Public Use
  Company Number: US-GBT-020040

PATIENT
  Age: 27 Year
  Sex: Female

DRUGS (2)
  1. OXBRYTA [Suspect]
     Active Substance: VOXELOTOR
     Indication: Sickle cell disease
     Route: 048
     Dates: start: 202012
  2. ENDARI [Concomitant]
     Active Substance: GLUTAMINE
     Dates: start: 2020

REACTIONS (3)
  - Sickle cell anaemia with crisis [Unknown]
  - Hypersensitivity [Unknown]
  - Therapy cessation [Unknown]

NARRATIVE: CASE EVENT DATE: 20230101
